FAERS Safety Report 24810918 (Version 1)
Quarter: 2025Q1

REPORT INFORMATION
  Report Type: Spontaneous
  Country: US (occurrence: US)
  Receive Date: 20250106
  Receipt Date: 20250106
  Transmission Date: 20250409
  Serious: Yes (Hospitalization, Other)
  Sender: DR REDDYS
  Company Number: US-DRL-USA-USA/2025/01/000058

PATIENT
  Age: 61 Year
  Sex: Female

DRUGS (2)
  1. VALGANCICLOVIR [Suspect]
     Active Substance: VALGANCICLOVIR
     Indication: Cytomegalovirus oesophagitis
  2. OMEPRAZOLE [Suspect]
     Active Substance: OMEPRAZOLE
     Indication: Cytomegalovirus oesophagitis

REACTIONS (4)
  - Disease progression [Recovering/Resolving]
  - Drug ineffective [Unknown]
  - Oesophageal stenosis [Unknown]
  - Product use in unapproved indication [Unknown]
